FAERS Safety Report 9084679 (Version 2)
Quarter: 2013Q1

REPORT INFORMATION
  Report Type: Spontaneous
  Country: AU (occurrence: AU)
  Receive Date: 20130218
  Receipt Date: 20130321
  Transmission Date: 20140127
  Serious: Yes (Hospitalization, Other)
  Sender: FDA-Public Use
  Company Number: PHHY2013AU014331

PATIENT
  Age: 74 Year
  Sex: Female

DRUGS (6)
  1. TASIGNA [Suspect]
     Indication: CHRONIC MYELOID LEUKAEMIA
     Dosage: 2 DF, DAILY
     Route: 048
     Dates: start: 20120727
  2. TASIGNA [Suspect]
     Dosage: 1 DF, DAILY
     Route: 048
     Dates: start: 20120910, end: 20130125
  3. TASIGNA [Suspect]
     Dosage: 2 DF, DAILY
     Dates: start: 20130126
  4. AVANZA [Concomitant]
  5. MURELAX [Concomitant]
  6. VENTOLIN [Concomitant]

REACTIONS (6)
  - Pneumonia [Unknown]
  - Feeling abnormal [Unknown]
  - Asthenia [Unknown]
  - Sputum discoloured [Unknown]
  - Respiratory disorder [Unknown]
  - Constipation [Unknown]
